FAERS Safety Report 4957769-7 (Version None)
Quarter: 2006Q1

REPORT INFORMATION
  Report Type: 
  Country: None (occurrence: None)
  Receive Date: 20060324
  Receipt Date: 20060316
  Transmission Date: 20060701
  Serious: Yes (Life-Threatening)
  Sender: FDA-Public Use
  Company Number: ZONI002295

PATIENT
  Age: 43 Year
  Sex: Female

DRUGS (4)
  1. ZONISAMIDE [Suspect]
     Indication: DEPRESSED LEVEL OF CONSCIOUSNESS
     Dosage: 200 MG, 1 IN 1 D; ORAL
     Route: 048
     Dates: start: 20060201, end: 20060302
  2. ZONISAMIDE [Suspect]
     Indication: HEAD INJURY
     Dosage: 200 MG, 1 IN 1 D; ORAL
     Route: 048
     Dates: start: 20060201, end: 20060302
  3. PASIL (PAZUFLOXACIN MESILATE) [Concomitant]
  4. CEREB (VALPROATE SODIUM) [Concomitant]

REACTIONS (4)
  - ALANINE AMINOTRANSFERASE INCREASED [None]
  - ASPARTATE AMINOTRANSFERASE INCREASED [None]
  - HEPATIC FUNCTION ABNORMAL [None]
  - THROMBOCYTOPENIA [None]
